FAERS Safety Report 12228736 (Version 1)
Quarter: 2016Q1

REPORT INFORMATION
  Report Type: Spontaneous
  Country: US (occurrence: None)
  Receive Date: 20160331
  Receipt Date: 20160331
  Transmission Date: 20160526
  Serious: No
  Sender: FDA-Public Use
  Company Number: None

PATIENT
  Age: 53 Year
  Sex: Female
  Weight: 107.96 kg

DRUGS (6)
  1. FLIMEPIRIDE [Concomitant]
  2. SIMVASTATIN. [Concomitant]
     Active Substance: SIMVASTATIN
  3. MULTI-VITAMIN [Concomitant]
     Active Substance: .ALPHA.-TOCOPHEROL ACETATE, DL-\ASCORBIC ACID\CYANOCOBALAMIN\FLUORIDE ION\FOLIC ACID\NIACIN\PYRIDOXINE\RIBOFLAVIN\THIAMINE\VITAMIN A\VITAMIN D
  4. LOSARTAN POTASSIUM 25 MG [Suspect]
     Active Substance: LOSARTAN POTASSIUM
     Indication: HYPERTENSION
     Dosage: 30 TABLET(S) IN THE MORNING TAKEN BY MOUTH
     Route: 048
     Dates: start: 20151210, end: 20160322
  5. LEVOTHROXINE SODIUM [Concomitant]
     Active Substance: LEVOTHYROXINE SODIUM
  6. VICTOZA [Concomitant]
     Active Substance: LIRAGLUTIDE

REACTIONS (10)
  - Peripheral swelling [None]
  - Feeling abnormal [None]
  - Dyspnoea [None]
  - Weight increased [None]
  - Wheezing [None]
  - Extrasystoles [None]
  - Cough [None]
  - Fatigue [None]
  - Dyspnoea exertional [None]
  - Chest discomfort [None]

NARRATIVE: CASE EVENT DATE: 20160322
